FAERS Safety Report 7104319-5 (Version None)
Quarter: 2010Q4

REPORT INFORMATION
  Report Type: 
  Country: None (occurrence: None)
  Receive Date: 20101115
  Receipt Date: 20101105
  Transmission Date: 20110411
  Serious: Yes (Hospitalization, Other)
  Sender: FDA-Public Use
  Company Number: US-ALLERGAN-0905556US

PATIENT
  Age: 48 Year
  Sex: Male
  Weight: 77.098 kg

DRUGS (14)
  1. BOTOXA? [Suspect]
     Indication: TORTICOLLIS
     Dosage: 400 UNITS, SINGLE
     Route: 030
     Dates: start: 20071005, end: 20071005
  2. BOTOXA? [Suspect]
     Dosage: 300 UNK, SINGLE
     Route: 030
     Dates: start: 20000614, end: 20000614
  3. BOTOXA? [Suspect]
     Dosage: 300 UNITS, SINGLE
     Route: 030
     Dates: start: 20001025, end: 20001025
  4. BOTOXA? [Suspect]
     Dosage: 300 UNITS, SINGLE
     Route: 030
     Dates: start: 20070820, end: 20070820
  5. MYOBLOC [Suspect]
     Indication: TORTICOLLIS
     Dosage: 10000 UNITS, SINGLE
     Route: 030
     Dates: start: 20010905, end: 20010905
  6. MYOBLOC [Suspect]
     Dosage: 10000 UNITS, SINGLE
     Route: 030
     Dates: start: 20031008, end: 20031008
  7. MYOBLOC [Suspect]
     Dosage: 10000 UNITS, SINGLE
     Route: 030
     Dates: start: 20070618, end: 20070618
  8. ISOMETHEPTENE/DICHLORALPHENAZONE/APAP [Concomitant]
     Indication: HEADACHE
     Dosage: 2 TAB AT ONSET
     Route: 048
  9. SUMATRIPTAN SUCCINATE [Concomitant]
     Indication: HEADACHE
     Dosage: 20 MG, PRN
     Route: 048
  10. CARISOPRODOL [Concomitant]
     Indication: MUSCLE SPASMS
     Dosage: 350 MG, Q6HR
     Route: 048
  11. NAPROXEN [Concomitant]
     Dosage: 500 MG, BID
     Route: 048
  12. AMITRIPTYLINE HCL [Concomitant]
     Dosage: 100 MG, QHS
     Route: 048
  13. DIAZEPAM [Concomitant]
     Dosage: 50 MG, Q6HR
  14. GABAPENTIN [Concomitant]
     Dosage: 300 MG, BID

REACTIONS (30)
  - AREFLEXIA [None]
  - ARTERIAL OCCLUSIVE DISEASE [None]
  - BLOOD PRESSURE ABNORMAL [None]
  - BRONCHITIS [None]
  - CARDIAC DISORDER [None]
  - DIARRHOEA [None]
  - DRUG INEFFECTIVE [None]
  - DYSKINESIA [None]
  - DYSPHAGIA [None]
  - DYSPNOEA [None]
  - DYSURIA [None]
  - GASTROOESOPHAGEAL REFLUX DISEASE [None]
  - HOT FLUSH [None]
  - MUSCLE SPASMS [None]
  - MUSCLE TWITCHING [None]
  - NEUROPATHY PERIPHERAL [None]
  - OVERDOSE [None]
  - PARAESTHESIA [None]
  - PARKINSON'S DISEASE [None]
  - PLEURAL DISORDER [None]
  - PLEURAL EFFUSION [None]
  - PNEUMONIA [None]
  - PNEUMONIA ASPIRATION [None]
  - RASH [None]
  - TREMOR [None]
  - URTICARIA [None]
  - VASCULAR OCCLUSION [None]
  - VISION BLURRED [None]
  - WEIGHT DECREASED [None]
  - WEIGHT INCREASED [None]
